FAERS Safety Report 20417021 (Version 1)
Quarter: 2022Q1

REPORT INFORMATION
  Report Type: Report from Study
  Country: FI (occurrence: FI)
  Receive Date: 20220202
  Receipt Date: 20220202
  Transmission Date: 20220423
  Serious: Yes (Other)
  Sender: FDA-Public Use
  Company Number: FI-PFIZER INC-202200161328

PATIENT
  Age: 69 Year
  Sex: Female
  Weight: 67.4 kg

DRUGS (25)
  1. INOTUZUMAB OZOGAMICIN [Suspect]
     Active Substance: INOTUZUMAB OZOGAMICIN
     Dosage: 1.4 MG/0.9 MG
     Dates: start: 20211119
  2. INOTUZUMAB OZOGAMICIN [Suspect]
     Active Substance: INOTUZUMAB OZOGAMICIN
     Dosage: 1.4 MG/0.9 MG
     Dates: start: 20211126
  3. INOTUZUMAB OZOGAMICIN [Suspect]
     Active Substance: INOTUZUMAB OZOGAMICIN
     Dosage: 1.4 MG/0.9 MG
     Dates: start: 20211203
  4. INOTUZUMAB OZOGAMICIN [Suspect]
     Active Substance: INOTUZUMAB OZOGAMICIN
     Dosage: 0.9 MG
     Dates: start: 20211220
  5. INOTUZUMAB OZOGAMICIN [Suspect]
     Active Substance: INOTUZUMAB OZOGAMICIN
     Dosage: 0.9 MG
     Dates: start: 20211228
  6. VINCRISTINE [Suspect]
     Active Substance: VINCRISTINE
     Dosage: 2 MG
     Dates: start: 20211119
  7. VINCRISTINE [Suspect]
     Active Substance: VINCRISTINE
     Dosage: 2 UNK
     Dates: start: 20211126
  8. VINCRISTINE [Suspect]
     Active Substance: VINCRISTINE
     Dosage: 2 UNK
     Dates: start: 20211203
  9. VINCRISTINE [Suspect]
     Active Substance: VINCRISTINE
     Dosage: 2 UNK
     Dates: start: 20211210
  10. METHOTREXATE [Suspect]
     Active Substance: METHOTREXATE
     Dosage: 12 MG
     Dates: start: 20211221
  11. CYCLOPHOSPHAMIDE [Suspect]
     Active Substance: CYCLOPHOSPHAMIDE
     Dosage: 558 MG
     Dates: start: 20211220
  12. CYCLOPHOSPHAMIDE [Suspect]
     Active Substance: CYCLOPHOSPHAMIDE
     Dosage: 558 MG
     Dates: start: 20211221
  13. CYCLOPHOSPHAMIDE [Suspect]
     Active Substance: CYCLOPHOSPHAMIDE
     Dosage: 558 MG
     Dates: start: 20211222
  14. ALLOPURINOL [Concomitant]
     Active Substance: ALLOPURINOL
     Dosage: 300 MG, 1X/DAY
     Route: 048
     Dates: start: 20211104
  15. FUROSEMIDE [Concomitant]
     Active Substance: FUROSEMIDE
     Dosage: 20 MG, 1X/DAY
     Route: 048
     Dates: start: 20211108
  16. POTASSIUM CHLORIDE [Concomitant]
     Active Substance: POTASSIUM CHLORIDE
     Dosage: 1 G X 2
     Route: 048
     Dates: start: 20211208
  17. LACTULOSE [Concomitant]
     Active Substance: LACTULOSE
     Dosage: 15 ML X 1-2 PRN
     Dates: start: 20211229
  18. LEVOTHYROXINE [Concomitant]
     Active Substance: LEVOTHYROXINE
     Dosage: 25 UG, 1X/DAY
     Route: 048
     Dates: start: 20210510
  19. POLYETHYLENE GLYCOLS [Concomitant]
     Active Substance: POLYETHYLENE GLYCOLS
     Dosage: 12 G X 1 PRN
     Route: 048
     Dates: start: 20211109
  20. ONDANSETRON [Concomitant]
     Active Substance: ONDANSETRON
     Dosage: 8 MG X 1-2 PRN
     Dates: start: 20211119
  21. PANTOPRAZOLE [Concomitant]
     Active Substance: PANTOPRAZOLE
     Dosage: 40 MG, 1X/DAY
     Route: 048
     Dates: start: 20211105
  22. ACETAMINOPHEN [Concomitant]
     Active Substance: ACETAMINOPHEN
     Dosage: 1000 MG X 1 PRN
     Route: 048
  23. SULFAMETHOXAZOLE\TRIMETHOPRIM [Concomitant]
     Active Substance: SULFAMETHOXAZOLE\TRIMETHOPRIM
     Dosage: 160/800 MG 1 TABLET 3 TIMES WEEKLY
     Dates: start: 20211117
  24. URSODIOL [Concomitant]
     Active Substance: URSODIOL
     Dosage: 250 MG 2 X 1 TABLET
     Route: 048
     Dates: start: 20211209
  25. VALACYCLOVIR HYDROCHLORIDE [Concomitant]
     Active Substance: VALACYCLOVIR HYDROCHLORIDE
     Dosage: 500 MG X 2
     Route: 048
     Dates: start: 20211109

REACTIONS (1)
  - Antiphospholipid syndrome [Not Recovered/Not Resolved]

NARRATIVE: CASE EVENT DATE: 20220117
